FAERS Safety Report 8295001-X (Version None)
Quarter: 2012Q2

REPORT INFORMATION
  Report Type: 
  Country: None (occurrence: None)
  Receive Date: 20120418
  Receipt Date: 20120412
  Transmission Date: 20120825
  Serious: Yes (Other)
  Sender: FDA-Public Use
  Company Number: US-ABBOTT-12P-163-0925447-00

PATIENT
  Sex: Female
  Weight: 50.394 kg

DRUGS (1)
  1. HUMIRA [Suspect]
     Indication: CROHN'S DISEASE
     Dates: start: 20120101

REACTIONS (5)
  - NAUSEA [None]
  - VOMITING [None]
  - MALAISE [None]
  - ABDOMINAL PAIN UPPER [None]
  - CROHN'S DISEASE [None]
